FAERS Safety Report 23593732 (Version 1)
Quarter: 2024Q1

REPORT INFORMATION
  Report Type: Spontaneous
  Country: BE (occurrence: BE)
  Receive Date: 20240304
  Receipt Date: 20240304
  Transmission Date: 20240409
  Serious: Yes (Hospitalization)
  Sender: FDA-Public Use
  Company Number: BE-BEH-2024169405

PATIENT
  Sex: Female

DRUGS (1)
  1. PRIVIGEN [Suspect]
     Active Substance: HUMAN IMMUNOGLOBULIN G
     Indication: Guillain-Barre syndrome
     Dosage: UNK
     Route: 065

REACTIONS (13)
  - Pyrexia [Unknown]
  - Hypotension [Unknown]
  - Tachycardia [Unknown]
  - Chest pain [Unknown]
  - Heart rate decreased [Unknown]
  - Hypertension [Unknown]
  - Heart rate increased [Unknown]
  - Chills [Unknown]
  - Dizziness [Unknown]
  - Fatigue [Unknown]
  - Headache [Unknown]
  - Body temperature increased [Unknown]
  - Pain [Unknown]
